FAERS Safety Report 11302164 (Version 1)
Quarter: 2015Q3

REPORT INFORMATION
  Report Type: Spontaneous
  Country: US (occurrence: None)
  Receive Date: 20150723
  Receipt Date: 20150723
  Transmission Date: 20151125
  Serious: Yes (Disabling, Other)
  Sender: FDA-Public Use
  Company Number: None

PATIENT
  Age: 72 Year
  Sex: Female
  Weight: 56.7 kg

DRUGS (11)
  1. COENZYME Q10 [Concomitant]
     Active Substance: UBIDECARENONE
  2. HORSE CHESTNUT [Concomitant]
     Active Substance: HORSE CHESTNUT
  3. EDTA [Concomitant]
     Active Substance: EDETIC ACID
  4. WHITAKERS VISION ADVANTAGE GOLD [Concomitant]
  5. VITAMIN D3 [Concomitant]
     Active Substance: CHOLECALCIFEROL
  6. OMEGA 3 [Concomitant]
     Active Substance: OMEGA-3 FATTY ACIDS
  7. RESVERSATROL [Concomitant]
  8. VITAMIN C [Concomitant]
     Active Substance: ASCORBIC ACID
  9. PYONOGENOL [Concomitant]
  10. PENICILLIN VK 500MG TABLET [Suspect]
     Active Substance: PENICILLIN V POTASSIUM
     Indication: NEURALGIA
     Dosage: 1 PILL 4X DAILY BY MOUTH WITH WATER
     Route: 048
     Dates: start: 20150220, end: 20150222
  11. CAYENNE PEPPER [Concomitant]
     Active Substance: CAPSICUM

REACTIONS (6)
  - Somnolence [None]
  - Unevaluable event [None]
  - Therapy cessation [None]
  - Memory impairment [None]
  - Fear [None]
  - Feeling abnormal [None]

NARRATIVE: CASE EVENT DATE: 20150222
